FAERS Safety Report 6022198-4 (Version None)
Quarter: 2008Q4

REPORT INFORMATION
  Report Type: 
  Country: None (occurrence: None)
  Receive Date: 20081229
  Receipt Date: 20081222
  Transmission Date: 20090506
  Serious: Yes (Other)
  Sender: FDA-Public Use
  Company Number: US-ASTRAZENECA-2008UW28657

PATIENT
  Sex: Female

DRUGS (1)
  1. CRESTOR [Suspect]
     Route: 048

REACTIONS (5)
  - BLOOD CHOLESTEROL [None]
  - DIABETES MELLITUS [None]
  - HYPERTENSION [None]
  - OVERWEIGHT [None]
  - PAIN IN EXTREMITY [None]
